FAERS Safety Report 21485571 (Version 2)
Quarter: 2022Q4

REPORT INFORMATION
  Report Type: Report from Study
  Country: US (occurrence: US)
  Receive Date: 20221020
  Receipt Date: 20221021
  Transmission Date: 20230113
  Serious: No
  Sender: FDA-Public Use
  Company Number: US-GILEAD-2022-0600964

PATIENT
  Sex: Female

DRUGS (2)
  1. SOFOSBUVIR\VELPATASVIR [Suspect]
     Active Substance: SOFOSBUVIR\VELPATASVIR
     Indication: Hepatitis C
     Dosage: 1 DOSAGE FORM, QD
     Route: 048
  2. OLMESARTAN [Concomitant]
     Active Substance: OLMESARTAN

REACTIONS (5)
  - Nausea [Unknown]
  - Illness [Unknown]
  - Hypertension [Unknown]
  - Bowel movement irregularity [Unknown]
  - Product physical issue [Not Recovered/Not Resolved]
